FAERS Safety Report 6085726-9 (Version None)
Quarter: 2009Q1

REPORT INFORMATION
  Report Type: 
  Country: None (occurrence: None)
  Receive Date: 20090220
  Receipt Date: 20090211
  Transmission Date: 20090719
  Serious: Yes (Other)
  Sender: FDA-Public Use
  Company Number: PHHY2009DK05548

PATIENT
  Age: 8 Year
  Sex: Female

DRUGS (1)
  1. SYNTOCINON [Suspect]

REACTIONS (2)
  - DRUG EXPOSURE VIA BREAST MILK [None]
  - PRECOCIOUS PUBERTY [None]
